FAERS Safety Report 18251922 (Version 1)
Quarter: 2020Q3

REPORT INFORMATION
  Report Type: Spontaneous
  Country: US (occurrence: US)
  Receive Date: 20200909
  Receipt Date: 20200909
  Transmission Date: 20201103
  Serious: Yes (Hospitalization, Other)
  Sender: FDA-Public Use
  Company Number: None

PATIENT
  Age: 62 Year
  Sex: Female
  Weight: 58 kg

DRUGS (11)
  1. ATORVASTATIN 80MG DAILY [Concomitant]
     Dates: start: 20191025
  2. INFLUENZA VACCINE QUAD [Concomitant]
     Dates: start: 20191025
  3. MORPHINE SULFATE. [Concomitant]
     Active Substance: MORPHINE SULFATE
     Dates: start: 20191025
  4. ALBUMIN [Suspect]
     Active Substance: ALBUMIN HUMAN
     Indication: BLOOD PRESSURE ABNORMAL
     Dosage: ?          OTHER FREQUENCY:ONE TIME;?
     Route: 040
     Dates: start: 20191026, end: 20191026
  5. HEPARIN [Concomitant]
     Active Substance: HEPARIN SODIUM
     Dates: start: 20191025
  6. IODIXANOL. [Concomitant]
     Active Substance: IODIXANOL
     Dates: start: 20191025
  7. SYMBICORT 80?4.5 2 PUFFS BID [Concomitant]
     Dates: start: 20191026
  8. EPTIFIBATIDE. [Concomitant]
     Active Substance: EPTIFIBATIDE
     Dates: start: 20191025
  9. METOPROLOL TARTRATE. [Concomitant]
     Active Substance: METOPROLOL TARTRATE
     Dates: start: 20191025
  10. CLOPIDOGREL [Concomitant]
     Active Substance: CLOPIDOGREL BISULFATE
     Dates: start: 20191025
  11. ASPIRIN 81 MG DAILY [Concomitant]
     Dates: start: 20191026

REACTIONS (12)
  - Cold sweat [None]
  - Hyperhidrosis [None]
  - Respiratory distress [None]
  - Interstitial lung disease [None]
  - Nausea [None]
  - Blood pressure systolic decreased [None]
  - Pulmonary oedema [None]
  - Acute respiratory failure [None]
  - Acute respiratory distress syndrome [None]
  - Abdominal pain [None]
  - Vomiting [None]
  - Fluid overload [None]

NARRATIVE: CASE EVENT DATE: 20191026
